FAERS Safety Report 8418149-5 (Version None)
Quarter: 2012Q2

REPORT INFORMATION
  Report Type: 
  Country: None (occurrence: None)
  Receive Date: 20120607
  Receipt Date: 20120531
  Transmission Date: 20120825
  Serious: Yes (Hospitalization, Other)
  Sender: FDA-Public Use
  Company Number: US-BAYER-2012-002889

PATIENT
  Age: 20 Year
  Sex: Female
  Weight: 68.027 kg

DRUGS (1)
  1. YAZ [Suspect]
     Indication: CONTRACEPTION
     Dosage: UNK
     Route: 048
     Dates: start: 20040101, end: 20081001

REACTIONS (5)
  - INJURY [None]
  - GALLBLADDER DISORDER [None]
  - PAIN [None]
  - CHOLECYSTITIS CHRONIC [None]
  - MENTAL DISORDER [None]
